FAERS Safety Report 7491188-7 (Version None)
Quarter: 2011Q2

REPORT INFORMATION
  Report Type: 
  Country: None (occurrence: None)
  Receive Date: 20110519
  Receipt Date: 20110505
  Transmission Date: 20111010
  Serious: Yes (Other)
  Sender: FDA-Public Use
  Company Number: TW-JNJFOC-20110503133

PATIENT
  Age: 55 Year
  Sex: Male

DRUGS (1)
  1. NICOTINE [Suspect]
     Indication: SMOKING CESSATION THERAPY
     Route: 048
     Dates: start: 20100101

REACTIONS (4)
  - INTENTIONAL DRUG MISUSE [None]
  - HYPOSMIA [None]
  - HYPOGEUSIA [None]
  - DRUG DEPENDENCE [None]
